FAERS Safety Report 6139079-8 (Version None)
Quarter: 2009Q1

REPORT INFORMATION
  Report Type: 
  Country: None (occurrence: None)
  Receive Date: 20090324
  Receipt Date: 20090326
  Transmission Date: 20090719
  Serious: Yes (Other)
  Sender: FDA-Public Use
  Company Number: ADE# 09-042

PATIENT
  Sex: Female

DRUGS (13)
  1. TORSEMIDE [Suspect]
     Indication: CARDIAC FAILURE CONGESTIVE
     Dosage: 1/2 TABLET DAILY
     Dates: start: 20090306, end: 20090319
  2. LEVOTHYROXIN 75MCG [Concomitant]
  3. AMLODIPINE [Concomitant]
  4. CYCLOBENZAPRINE [Concomitant]
  5. SIMVASTATIN [Concomitant]
  6. MIRTAZAPINE [Concomitant]
  7. ATENOLOL [Concomitant]
  8. MERFORMIN 850MG [Concomitant]
  9. LISINOPRIL AND HYDROCHLOROTHIAZIDE [Concomitant]
  10. NITROGLYCERIN 6.5MG [Concomitant]
  11. ROPINIROLE [Concomitant]
  12. CEFUROXIME [Concomitant]
  13. GLIPIZIDE [Concomitant]

REACTIONS (3)
  - DYSPNOEA [None]
  - PRODUCT QUALITY ISSUE [None]
  - WEIGHT INCREASED [None]
